FAERS Safety Report 15195442 (Version 1)
Quarter: 2018Q3

REPORT INFORMATION
  Report Type: Spontaneous
  Country: ES (occurrence: ES)
  Receive Date: 20180725
  Receipt Date: 20180725
  Transmission Date: 20181010
  Serious: Yes (Hospitalization)
  Sender: FDA-Public Use
  Company Number: PHHY2018ES049304

PATIENT
  Age: 55 Year
  Sex: Female

DRUGS (4)
  1. VALGANCICLOVIR. [Suspect]
     Active Substance: VALGANCICLOVIR
     Indication: RENAL TRANSPLANT
     Dosage: 450 MG, QD
     Route: 048
  2. MYFORTIC [Suspect]
     Active Substance: MYCOPHENOLATE SODIUM
     Indication: RENAL TRANSPLANT
     Dosage: 1 DF, Q12H
     Route: 048
     Dates: start: 201611, end: 20170212
  3. ENVARSUS XR [Suspect]
     Active Substance: TACROLIMUS
     Indication: RENAL TRANSPLANT
     Dosage: 3 MG, QD
     Route: 048
     Dates: start: 201611, end: 20170207
  4. ENVARSUS XR [Suspect]
     Active Substance: TACROLIMUS
     Dosage: UNK DOSE REDUCED
     Route: 048

REACTIONS (2)
  - Acute kidney injury [Recovered/Resolved]
  - Leukopenia [Recovered/Resolved]

NARRATIVE: CASE EVENT DATE: 20170207
